FAERS Safety Report 8363854-2 (Version None)
Quarter: 2012Q2

REPORT INFORMATION
  Report Type: 
  Country: None (occurrence: None)
  Receive Date: 20120516
  Receipt Date: 20120109
  Transmission Date: 20120825
  Serious: No
  Sender: FDA-Public Use
  Company Number: US-ALEXION-A201200050

PATIENT
  Sex: Female

DRUGS (6)
  1. TRAMADOL HCL [Concomitant]
     Dosage: 50 MG, UNK
     Route: 048
     Dates: start: 20110121
  2. SOLIRIS [Suspect]
     Indication: PAROXYSMAL NOCTURNAL HAEMOGLOBINURIA
     Dosage: 600 MG, QW
     Route: 042
     Dates: start: 20110408, end: 20110429
  3. FIORICET [Concomitant]
     Dosage: 50-325-40 MG, 1 PRN
     Route: 048
     Dates: start: 20110505
  4. SOLIRIS [Suspect]
     Dosage: 900 MG, Q2W
     Route: 042
     Dates: start: 20110506
  5. TRAZODONE HCL [Concomitant]
     Dosage: 100 MG, UNK
     Route: 048
     Dates: start: 20110121
  6. PROMETHAZINE HCL [Concomitant]
     Dosage: 25 MG, UNK
     Route: 048
     Dates: start: 20110505

REACTIONS (1)
  - WEIGHT DECREASED [None]
